FAERS Safety Report 19285966 (Version 3)
Quarter: 2021Q3

REPORT INFORMATION
  Report Type: Spontaneous
  Country: JP (occurrence: JP)
  Receive Date: 20210521
  Receipt Date: 20210707
  Transmission Date: 20211014
  Serious: Yes (Other)
  Sender: FDA-Public Use
  Company Number: JP-OTSUKA-2021_016768

PATIENT
  Age: 7 Decade
  Sex: Female

DRUGS (13)
  1. ABILIFY [Suspect]
     Active Substance: ARIPIPRAZOLE
     Dosage: 30 MG, QD
     Route: 048
     Dates: start: 20120710, end: 202007
  2. LIMAS [Suspect]
     Active Substance: LITHIUM CARBONATE
     Dosage: 300 MG, QD
     Route: 048
     Dates: start: 20210521
  3. VALERIN [VALPROATE SODIUM] [Concomitant]
     Active Substance: VALPROATE SODIUM
     Indication: PRODUCT USED FOR UNKNOWN INDICATION
     Dosage: 200 TO 800MG, QD
     Route: 048
     Dates: start: 200703, end: 20210521
  4. DEPAKENE [VALPROATE SODIUM] [Concomitant]
     Active Substance: VALPROATE SODIUM
     Indication: PRODUCT USED FOR UNKNOWN INDICATION
     Dosage: 200 TO 800MG, QD
     Route: 048
     Dates: start: 200703, end: 20210521
  5. DEPAKENE?R [Concomitant]
     Active Substance: VALPROATE SODIUM
     Indication: PRODUCT USED FOR UNKNOWN INDICATION
     Dosage: 800 MG, QD
     Route: 048
  6. INVEGA [Concomitant]
     Active Substance: PALIPERIDONE
     Indication: PRODUCT USED FOR UNKNOWN INDICATION
     Dosage: 3 MG, QD
     Route: 048
     Dates: start: 20120710, end: 20151105
  7. LIMAS [Suspect]
     Active Substance: LITHIUM CARBONATE
     Indication: PRODUCT USED FOR UNKNOWN INDICATION
     Dosage: 400 MG, QD
     Route: 048
     Dates: start: 20121124, end: 20210521
  8. ABILIFY [Suspect]
     Active Substance: ARIPIPRAZOLE
     Indication: MANIA
     Dosage: 24 MG, QD
     Route: 048
     Dates: start: 20120317, end: 20120710
  9. DEPAKENE?R [Concomitant]
     Active Substance: VALPROATE SODIUM
     Dosage: 400 MG, QD
     Route: 048
     Dates: start: 20210521
  10. ABILIFY [Suspect]
     Active Substance: ARIPIPRAZOLE
     Indication: BIPOLAR DISORDER
     Dosage: DOSE REDUCED FROM 30 MG TO 4 MG (1 MG/2W)
     Route: 048
     Dates: start: 202007, end: 20210521
  11. ABILIFY [Suspect]
     Active Substance: ARIPIPRAZOLE
     Dosage: 4 MG, QD
     Route: 048
     Dates: start: 20210521, end: 202106
  12. ABILIFY [Suspect]
     Active Substance: ARIPIPRAZOLE
     Dosage: 3 MG, QD
     Route: 048
     Dates: start: 202106
  13. LIMAS [Suspect]
     Active Substance: LITHIUM CARBONATE
     Dosage: 200 TO 600 MG, QD
     Route: 048
     Dates: start: 200805, end: 20121124

REACTIONS (4)
  - Hypothyroidism [Unknown]
  - Renal impairment [Unknown]
  - Tremor [Recovered/Resolved]
  - Pleurothotonus [Not Recovered/Not Resolved]

NARRATIVE: CASE EVENT DATE: 202007
